FAERS Safety Report 21371650 (Version 2)
Quarter: 2022Q4

REPORT INFORMATION
  Report Type: Report from Study
  Country: CA (occurrence: CA)
  Receive Date: 20220923
  Receipt Date: 20221114
  Transmission Date: 20230113
  Serious: Yes (Death, Hospitalization)
  Sender: FDA-Public Use
  Company Number: CA-002147023-NVSC2022CA210094

PATIENT

DRUGS (2)
  1. RUXOLITINIB [Suspect]
     Active Substance: RUXOLITINIB
     Indication: Chronic graft versus host disease
     Dosage: UNK
     Route: 048
  2. RUXOLITINIB [Suspect]
     Active Substance: RUXOLITINIB
     Dosage: UNK
     Route: 048
     Dates: start: 20220914

REACTIONS (5)
  - Fall [Unknown]
  - Muscular weakness [Unknown]
  - Death [Fatal]
  - Balance disorder [Unknown]
  - Tremor [Unknown]

NARRATIVE: CASE EVENT DATE: 20220913
